FAERS Safety Report 6442725-2 (Version None)
Quarter: 2009Q4

REPORT INFORMATION
  Report Type: 
  Country: None (occurrence: None)
  Receive Date: 20091117
  Receipt Date: 20090116
  Transmission Date: 20100525
  Serious: Yes (Other)
  Sender: FDA-Public Use
  Company Number: PHHY2009BR47306

PATIENT
  Sex: Female
  Weight: 60 kg

DRUGS (8)
  1. ACLASTA [Suspect]
     Indication: OSTEOPOROTIC FRACTURE
     Dosage: UNK
     Route: 042
     Dates: start: 20090101
  2. OS-CAL [Suspect]
     Dosage: 1 TABLET DAILY
     Route: 048
  3. LOSARTAN POTASSIUM [Concomitant]
     Indication: BLOOD PRESSURE
     Dosage: 1 TABLET DAILY
     Route: 048
  4. ATENOLOL [Concomitant]
     Indication: CARDIAC DISORDER
     Dosage: 1 TABLET DAILY
     Route: 048
  5. IRON SULFATETHIAMIN COMPOUND TAB [Concomitant]
     Indication: ANAEMIA
     Dosage: 1 TABLET DAILY
     Route: 048
  6. FOLIC ACID [Concomitant]
     Indication: ANAEMIA
     Dosage: 1 TABLET DAILY
     Route: 048
  7. ASCORBIC ACID [Concomitant]
     Indication: IRON METABOLISM DISORDER
     Dosage: 1 TABLET DAILY
     Route: 048
  8. MOTILIUM [Concomitant]
     Indication: DYSPEPSIA
     Dosage: UNK
     Route: 048

REACTIONS (6)
  - ARTHRALGIA [None]
  - CONSTIPATION [None]
  - DIARRHOEA [None]
  - NECK PAIN [None]
  - PAIN [None]
  - URINARY TRACT INFECTION [None]
